FAERS Safety Report 24623387 (Version 1)
Quarter: 2024Q4

REPORT INFORMATION
  Report Type: Spontaneous
  Country: PL (occurrence: PL)
  Receive Date: 20241115
  Receipt Date: 20241115
  Transmission Date: 20250114
  Serious: Yes (Death, Other)
  Sender: ALEXION PHARMACEUTICALS
  Company Number: PL-AstraZeneca-CH-00742295A

PATIENT

DRUGS (4)
  1. ONDEXXYA [Suspect]
     Active Substance: ANDEXANET ALFA
     Dosage: 880 MILLIGRAM, SINGLE
  2. ONDEXXYA [Suspect]
     Active Substance: ANDEXANET ALFA
     Dosage: 880 MILLIGRAM, SINGLE
  3. ONDEXXYA [Suspect]
     Active Substance: ANDEXANET ALFA
     Dosage: 880 MILLIGRAM, SINGLE
  4. ONDEXXYA [Suspect]
     Active Substance: ANDEXANET ALFA
     Dosage: 880 MILLIGRAM, SINGLE

REACTIONS (1)
  - Death [Fatal]
